FAERS Safety Report 16461969 (Version 3)
Quarter: 2019Q3

REPORT INFORMATION
  Report Type: Spontaneous
  Country: JP (occurrence: JP)
  Receive Date: 20190621
  Receipt Date: 20190822
  Transmission Date: 20191004
  Serious: Yes (Other)
  Sender: FDA-Public Use
  Company Number: JP-GLAXOSMITHKLINE-JP2019JPN109501

PATIENT
  Age: 44 Year
  Sex: Female

DRUGS (2)
  1. PREDONINE [Concomitant]
     Active Substance: PREDNISOLONE
     Indication: EOSINOPHILIC GRANULOMATOSIS WITH POLYANGIITIS
     Dosage: UNK
  2. MEPOLIZUMAB [Suspect]
     Active Substance: MEPOLIZUMAB
     Indication: EOSINOPHILIC GRANULOMATOSIS WITH POLYANGIITIS
     Dosage: 300 MG, UNK
     Route: 058
     Dates: start: 20190315

REACTIONS (7)
  - Malaise [Not Recovered/Not Resolved]
  - Pain in extremity [Recovering/Resolving]
  - Musculoskeletal pain [Recovering/Resolving]
  - Polymyalgia rheumatica [Unknown]
  - Enthesopathy [Unknown]
  - Musculoskeletal stiffness [Not Recovered/Not Resolved]
  - Spondylitis [Unknown]

NARRATIVE: CASE EVENT DATE: 201905
